FAERS Safety Report 7383189-4 (Version None)
Quarter: 2011Q1

REPORT INFORMATION
  Report Type: 
  Country: None (occurrence: None)
  Receive Date: 20110330
  Receipt Date: 20110325
  Transmission Date: 20110831
  Serious: Yes (Hospitalization)
  Sender: FDA-Public Use
  Company Number: GB-SANOFI-AVENTIS-2011SA018440

PATIENT

DRUGS (1)
  1. CLEXANE SYRINGES [Suspect]
     Route: 065

REACTIONS (2)
  - INJECTION SITE NERVE DAMAGE [None]
  - PRODUCT QUALITY ISSUE [None]
